FAERS Safety Report 14425116 (Version 1)
Quarter: 2018Q1

REPORT INFORMATION
  Report Type: Report from Study
  Country: DE (occurrence: DE)
  Receive Date: 20180123
  Receipt Date: 20180123
  Transmission Date: 20180509
  Serious: Yes (Hospitalization)
  Sender: FDA-Public Use
  Company Number: DE-TEVA-2018-DE-850701

PATIENT
  Age: 73 Year
  Sex: Male
  Weight: 79 kg

DRUGS (12)
  1. BEVACIZUMAB. [Suspect]
     Active Substance: BEVACIZUMAB
     Indication: COLORECTAL CANCER METASTATIC
     Route: 042
     Dates: start: 20090127
  2. CARVEDILOL. [Concomitant]
     Active Substance: CARVEDILOL
     Dates: start: 20090126
  3. CALCIUM CARBONATE. [Concomitant]
     Active Substance: CALCIUM CARBONATE
     Dates: start: 20090126
  4. IRINOTECAN HCL [Suspect]
     Active Substance: IRINOTECAN HYDROCHLORIDE
     Indication: COLORECTAL CANCER METASTATIC
     Route: 042
     Dates: start: 20090127
  5. NEXIUM [Concomitant]
     Active Substance: ESOMEPRAZOLE MAGNESIUM
     Dates: start: 20090124
  6. ASPIRIN. [Concomitant]
     Active Substance: ASPIRIN
     Dates: start: 20090126
  7. TAMSULOSIN [Concomitant]
     Active Substance: TAMSULOSIN
     Dates: start: 20090126
  8. FLUOROURACIL. [Suspect]
     Active Substance: FLUOROURACIL
     Indication: COLORECTAL CANCER METASTATIC
     Route: 042
     Dates: start: 20090127
  9. DECORTIN [Concomitant]
     Active Substance: PREDNISONE
     Dates: start: 20090126
  10. SIMVASTATIN. [Concomitant]
     Active Substance: SIMVASTATIN
     Dates: start: 20090124
  11. FOLINIC ACID [Suspect]
     Active Substance: LEUCOVORIN
     Indication: COLORECTAL CANCER METASTATIC
     Route: 042
     Dates: start: 20090127
  12. DIOVAN [Concomitant]
     Active Substance: VALSARTAN
     Dates: start: 20090126

REACTIONS (1)
  - Pneumonia [Recovered/Resolved]

NARRATIVE: CASE EVENT DATE: 20090129
